FAERS Safety Report 4342892-0 (Version None)
Quarter: 2004Q1

REPORT INFORMATION
  Report Type: 
  Country: None (occurrence: None)
  Receive Date: 20040325
  Receipt Date: 20040205
  Transmission Date: 20041129
  Serious: No
  Sender: FDA-Public Use
  Company Number: USA040258663

PATIENT
  Age: 78 Year
  Sex: Female

DRUGS (4)
  1. FORTEO [Suspect]
     Dates: start: 20040101
  2. AMBIEN [Concomitant]
  3. ATARAX (HYDOXYZINE HYDROCHLORIDE) [Concomitant]
  4. LORTAB [Concomitant]

REACTIONS (18)
  - ARTHRALGIA [None]
  - DIABETIC NEUROPATHY [None]
  - DIARRHOEA [None]
  - DIZZINESS [None]
  - DYSURIA [None]
  - FALL [None]
  - FEELING ABNORMAL [None]
  - FLUID RETENTION [None]
  - HEADACHE [None]
  - HYPERSOMNIA [None]
  - INFLUENZA LIKE ILLNESS [None]
  - IRRITABLE BOWEL SYNDROME [None]
  - NAUSEA [None]
  - OEDEMA PERIPHERAL [None]
  - POLYURIA [None]
  - SOMNOLENCE [None]
  - URETERAL CATHETERISATION [None]
  - URINARY RETENTION [None]
